FAERS Safety Report 7247311-2 (Version None)
Quarter: 2011Q1

REPORT INFORMATION
  Report Type: 
  Country: None (occurrence: None)
  Receive Date: 20110127
  Receipt Date: 20110121
  Transmission Date: 20110831
  Serious: Yes (Hospitalization)
  Sender: FDA-Public Use
  Company Number: B0695394A

PATIENT
  Sex: Male

DRUGS (22)
  1. INIPOMP [Suspect]
     Dosage: 40MG PER DAY
     Route: 048
     Dates: start: 20101210, end: 20101223
  2. ELISOR [Concomitant]
     Route: 065
  3. NEORAL [Concomitant]
     Dosage: 20MG PER DAY
     Route: 065
     Dates: start: 20070601
  4. UVEDOSE [Concomitant]
     Route: 065
  5. EXACYL [Suspect]
     Dosage: 500MG FOUR TIMES PER DAY
     Route: 048
     Dates: start: 20101220
  6. IMODIUM [Concomitant]
     Route: 065
  7. CERTICAN [Concomitant]
     Dosage: .5MG PER DAY
     Route: 065
     Dates: start: 20070601
  8. RADIOTHERAPY [Concomitant]
  9. AUGMENTIN [Suspect]
     Dosage: 1G THREE TIMES PER DAY
     Route: 048
     Dates: start: 20101216, end: 20101223
  10. SOLU-MEDROL [Concomitant]
     Route: 065
  11. LOVENOX [Concomitant]
     Route: 065
     Dates: end: 20101215
  12. PERFALGAN [Concomitant]
     Indication: PAIN
     Route: 065
     Dates: start: 20101210, end: 20101227
  13. TPN [Suspect]
     Dosage: 1000ML PER DAY
     Route: 048
     Dates: end: 20101224
  14. KEPPRA [Suspect]
     Dosage: 500MG TWICE PER DAY
     Route: 065
     Dates: start: 20101210
  15. DEPAKENE [Concomitant]
     Dosage: 1000MG PER DAY
     Route: 065
  16. APROVEL [Concomitant]
     Route: 065
  17. XANAX [Suspect]
     Dosage: .75MG PER DAY
     Route: 048
     Dates: start: 20101213
  18. DURAGESIC-100 [Concomitant]
     Route: 065
     Dates: start: 20101109
  19. TARDYFERON [Concomitant]
     Route: 065
  20. RANITIDINE [Concomitant]
     Route: 065
  21. LEXOMIL [Concomitant]
     Route: 065
  22. TARCEVA [Suspect]
     Dosage: 150MG PER DAY
     Route: 048
     Dates: start: 20101218

REACTIONS (4)
  - HAEMOPTYSIS [None]
  - THROMBOCYTOPENIA [None]
  - CONDITION AGGRAVATED [None]
  - HISTIOCYTOSIS HAEMATOPHAGIC [None]
